FAERS Safety Report 5992568-9 (Version None)
Quarter: 2008Q4

REPORT INFORMATION
  Report Type: 
  Country: None (occurrence: None)
  Receive Date: 20081211
  Receipt Date: 20080521
  Transmission Date: 20090506
  Serious: No
  Sender: FDA-Public Use
  Company Number: US-AMGEN-KDL281543

PATIENT
  Sex: Female

DRUGS (1)
  1. ENBREL [Suspect]
     Indication: RHEUMATOID ARTHRITIS
     Route: 058
     Dates: start: 20080515

REACTIONS (6)
  - DIZZINESS [None]
  - DRY MOUTH [None]
  - NAUSEA [None]
  - SLEEP DISORDER [None]
  - TREMOR [None]
  - VOMITING [None]
